FAERS Safety Report 21802327 (Version 1)
Quarter: 2022Q4

REPORT INFORMATION
  Report Type: Report from Study
  Country: US (occurrence: US)
  Receive Date: 20221230
  Receipt Date: 20221230
  Transmission Date: 20230112
  Serious: No
  Sender: FDA-Public Use
  Company Number: US-ACORDA-ACO_173040_2022

PATIENT
  Sex: Male

DRUGS (4)
  1. INBRIJA [Suspect]
     Active Substance: LEVODOPA
     Indication: Parkinson^s disease
     Dosage: 2 DOSAGE FORM, EVERY 4 HOURS, PRN (NOT TO EXCEED 5 DOSES PER DAY)
     Dates: start: 20190906
  2. INBRIJA [Suspect]
     Active Substance: LEVODOPA
     Indication: Freezing phenomenon
  3. INBRIJA [Suspect]
     Active Substance: LEVODOPA
     Indication: On and off phenomenon
  4. HYALURONATE SODIUM [Concomitant]
     Active Substance: HYALURONATE SODIUM
     Indication: Product used for unknown indication
     Dosage: 20MG/2ML
     Route: 065

REACTIONS (1)
  - Parkinson^s disease [Unknown]
